FAERS Safety Report 8187399-8 (Version None)
Quarter: 2012Q1

REPORT INFORMATION
  Report Type: 
  Country: None (occurrence: None)
  Receive Date: 20120306
  Receipt Date: 20120229
  Transmission Date: 20120608
  Serious: Yes (Other)
  Sender: FDA-Public Use
  Company Number: US-ROCHE-798269

PATIENT
  Sex: Female
  Weight: 68.1 kg

DRUGS (3)
  1. IBUPROFEN TABLETS [Concomitant]
  2. BONIVA [Suspect]
     Indication: OSTEOPOROSIS
     Route: 065
  3. AMBIEN [Concomitant]

REACTIONS (2)
  - FEMUR FRACTURE [None]
  - EMOTIONAL DISTRESS [None]
